FAERS Safety Report 8694424 (Version 3)
Quarter: 2012Q4

REPORT INFORMATION
  Report Type: Report from Study
  Country: AU (occurrence: AU)
  Receive Date: 20120731
  Receipt Date: 20120828
  Transmission Date: 20130627
  Serious: Yes (Hospitalization)
  Sender: FDA-Public Use
  Company Number: AU-CELGENEUS-008-21660-12071540

PATIENT
  Age: 64 Year
  Sex: Female
  Weight: 70 kg

DRUGS (14)
  1. ABRAXANE [Suspect]
     Indication: PANCREATIC CANCER
     Dates: start: 20120705
  2. ABRAXANE [Suspect]
     Route: 065
     Dates: start: 20120712
  3. GEMCITABINE [Suspect]
     Indication: PANCREATIC CANCER
     Route: 065
     Dates: start: 20120705
  4. GEMCITABINE [Suspect]
     Route: 065
     Dates: start: 20120712
  5. QUIT NICOTINE [Concomitant]
     Indication: DRUG USE FOR UNKNOWN INDICATION
     Dosage: 21 Milligram
     Route: 062
     Dates: start: 201203, end: 20120713
  6. METFORMIN [Concomitant]
     Indication: DRUG USE FOR UNKNOWN INDICATION
     Dosage: 500 Milligram
     Route: 048
     Dates: start: 201203
  7. ZOLOFT [Concomitant]
     Indication: DRUG USE FOR UNKNOWN INDICATION
     Dosage: 10 Milligram
     Route: 048
     Dates: start: 1998
  8. ZOLOFT [Concomitant]
     Dosage: 100 Milligram
     Route: 048
     Dates: start: 20120728
  9. IRBESARTAN [Concomitant]
     Indication: DRUG USE FOR UNKNOWN INDICATION
     Dosage: 75 Milligram
     Route: 048
     Dates: start: 201203
  10. FEXOFENADINE [Concomitant]
     Indication: PROPHYLAXIS
     Dosage: 180 Milligram
     Route: 048
     Dates: start: 20120607
  11. OXYCODONE [Concomitant]
     Indication: DRUG USE FOR UNKNOWN INDICATION
     Dosage: 15 Milligram
     Route: 048
     Dates: start: 20120623
  12. PARACETAMOL [Concomitant]
     Indication: DRUG USE FOR UNKNOWN INDICATION
     Dosage: 3000 Milligram
     Route: 048
     Dates: start: 20120623
  13. GRANISETRON [Concomitant]
     Indication: PROPHYLAXIS
     Route: 048
     Dates: start: 20120705
  14. HALOPERIDOL [Concomitant]
     Indication: PROPHYLAXIS
     Dosage: 10 Milligram
     Route: 048
     Dates: start: 20120728

REACTIONS (2)
  - Cholangitis [Recovered/Resolved]
  - Pleuritic pain [Recovered/Resolved]
